FAERS Safety Report 25925241 (Version 2)
Quarter: 2025Q4

REPORT INFORMATION
  Report Type: Report from Study
  Country: KR (occurrence: KR)
  Receive Date: 20251015
  Receipt Date: 20251024
  Transmission Date: 20260118
  Serious: Yes (Hospitalization)
  Sender: ASTELLAS
  Company Number: KR-ASTELLAS-2025-AER-056445

PATIENT
  Age: 69 Year
  Sex: Male
  Weight: 65 kg

DRUGS (18)
  1. PADCEV [Suspect]
     Active Substance: ENFORTUMAB VEDOTIN-EJFV
     Indication: Transitional cell carcinoma metastatic
     Dosage: (1.23 MG/KG)
     Route: 042
     Dates: start: 20250901
  2. PADCEV [Suspect]
     Active Substance: ENFORTUMAB VEDOTIN-EJFV
     Dosage: (1.23 MG/KG)
     Route: 042
     Dates: start: 20250908
  3. PADCEV [Suspect]
     Active Substance: ENFORTUMAB VEDOTIN-EJFV
     Dosage: (1.23 MG/KG)
     Route: 042
     Dates: start: 20250922
  4. PADCEV [Suspect]
     Active Substance: ENFORTUMAB VEDOTIN-EJFV
     Dosage: (1.23 MG/KG)
     Route: 042
     Dates: start: 20250929
  5. PADCEV [Suspect]
     Active Substance: ENFORTUMAB VEDOTIN-EJFV
     Dosage: (1.23 MG/KG)
     Route: 042
     Dates: start: 20250820
  6. ZOLPIDEM TARTRATE [Concomitant]
     Active Substance: ZOLPIDEM TARTRATE
     Indication: Disease complication
     Dosage: STILNOX CR TAB?ONGOING
     Route: 048
     Dates: start: 20250908
  7. MACPERAN [METOCLOPRAMIDE] [Concomitant]
     Indication: Premedication
     Dosage: ONGOING
     Route: 048
     Dates: start: 20250820
  8. LOPERAMIDE HYDROCHLORIDE [Concomitant]
     Active Substance: LOPERAMIDE HYDROCHLORIDE
     Indication: Premedication
     Dosage: ONGOING
     Route: 048
     Dates: start: 20250820
  9. MAGNESIUM HYDROXIDE [Concomitant]
     Active Substance: MAGNESIUM HYDROXIDE
     Indication: Premedication
     Dosage: ONGOING
     Route: 048
     Dates: start: 20250820
  10. TANTUM [BENZYDAMINE HYDROCHLORIDE] [Concomitant]
     Indication: Premedication
     Dosage: 300 BTL?ONGOING
     Route: 048
     Dates: start: 20250820
  11. SODIUM BICARBONATE [Concomitant]
     Active Substance: SODIUM BICARBONATE
     Indication: Premedication
     Dosage: ONGOING
     Route: 061
     Dates: start: 20250820
  12. LACTICARE [Concomitant]
     Indication: Premedication
     Dosage: 2 BTL?ONGOING
     Route: 061
     Dates: start: 20250820
  13. PMS NYSTATIN [Concomitant]
     Indication: Oral candidiasis
     Dosage: 5 ML /TID ?ONGOING
     Route: 048
     Dates: start: 20250922
  14. ALOXI [Concomitant]
     Active Substance: PALONOSETRON HYDROCHLORIDE
     Indication: Nausea
     Route: 042
     Dates: start: 20250901, end: 20250901
  15. ALOXI [Concomitant]
     Active Substance: PALONOSETRON HYDROCHLORIDE
     Indication: Vomiting
  16. ACETPHEN PREMIX [Concomitant]
     Indication: Pneumonia
     Route: 042
     Dates: start: 20250929, end: 20250929
  17. EPAL [EPALRESTAT] [Concomitant]
     Indication: Diabetes mellitus
     Dosage: ONGOING
     Route: 048
     Dates: start: 20251002
  18. EPAL [EPALRESTAT] [Concomitant]
     Route: 048
     Dates: start: 20250827, end: 20250930

REACTIONS (1)
  - Colitis [Recovered/Resolved]

NARRATIVE: CASE EVENT DATE: 20250930
